FAERS Safety Report 8155679-8 (Version None)
Quarter: 2012Q1

REPORT INFORMATION
  Report Type: 
  Country: None (occurrence: None)
  Receive Date: 20120222
  Receipt Date: 20120217
  Transmission Date: 20120608
  Serious: No
  Sender: FDA-Public Use
  Company Number: US-PFIZER INC-2012043424

PATIENT
  Sex: Male

DRUGS (1)
  1. SUTENT [Suspect]
     Indication: THYROID CANCER
     Dosage: 12.5 MG 3 CAPS DAILY
     Dates: start: 20110601, end: 20120214

REACTIONS (2)
  - THYROID CANCER [None]
  - DISEASE PROGRESSION [None]
